FAERS Safety Report 18610807 (Version 1)
Quarter: 2020Q4

REPORT INFORMATION
  Report Type: Spontaneous
  Country: US (occurrence: US)
  Receive Date: 20201211
  Receipt Date: 20201211
  Transmission Date: 20210114
  Serious: Yes (Other)
  Sender: FDA-Public Use
  Company Number: None

PATIENT
  Age: 65 Year
  Sex: Male

DRUGS (4)
  1. TACROLIMUS 0.5MG [Suspect]
     Active Substance: TACROLIMUS
     Route: 048
     Dates: start: 20201112
  2. FLUCONAZOLE 100MG TAB [Concomitant]
  3. TACROLIMUS. [Suspect]
     Active Substance: TACROLIMUS
     Indication: RENAL TRANSPLANT
     Route: 048
     Dates: start: 20201112
  4. CIPROFLOXACIN 250MG TAB [Concomitant]
     Active Substance: CIPROFLOXACIN

REACTIONS (2)
  - Hallucination, visual [None]
  - Psychotic disorder [None]

NARRATIVE: CASE EVENT DATE: 202012
